FAERS Safety Report 7763660-3 (Version None)
Quarter: 2011Q3

REPORT INFORMATION
  Report Type: 
  Country: None (occurrence: None)
  Receive Date: 20110921
  Receipt Date: 20110912
  Transmission Date: 20111222
  Serious: No
  Sender: FDA-Public Use
  Company Number: US-BIOGENIDEC-2011BI005911

PATIENT
  Sex: Female

DRUGS (1)
  1. TYSABRI [Suspect]
     Indication: MULTIPLE SCLEROSIS
     Route: 042
     Dates: start: 20101115, end: 20110719

REACTIONS (10)
  - FALL [None]
  - MEMORY IMPAIRMENT [None]
  - PARAESTHESIA [None]
  - ASTHENIA [None]
  - STRESS [None]
  - BALANCE DISORDER [None]
  - URINARY TRACT INFECTION [None]
  - LACERATION [None]
  - ARTHROPATHY [None]
  - JOINT SWELLING [None]
